FAERS Safety Report 5256318-6 (Version None)
Quarter: 2007Q1

REPORT INFORMATION
  Report Type: 
  Country: None (occurrence: None)
  Receive Date: 20070306
  Receipt Date: 20070222
  Transmission Date: 20070707
  Serious: Yes (Life-Threatening, Hospitalization)
  Sender: FDA-Public Use
  Company Number: US-ROCHE-445415

PATIENT
  Age: 43 Year
  Sex: Male
  Weight: 62.6 kg

DRUGS (6)
  1. PEG-INTERFERON A-2A (RO 25-8310) [Suspect]
     Dosage: TAKEN FOR 8 MONTHS BEFORE SAE
     Route: 058
     Dates: start: 20050726
  2. RIBAVIRIN [Suspect]
     Dosage: TAKEN FOR 8 MONTHS BEFORE SAE
     Route: 065
     Dates: start: 20050726
  3. PROCRIT [Suspect]
     Dosage: TAKEN FOR 3 MONTHS BEFORE SAE
     Route: 058
     Dates: start: 20051202
  4. TRAZODONE HCL [Concomitant]
     Dosage: TAKEN AT NIGHT TAKEN FOR 8 MONTHS BEFORE SAE
     Dates: start: 20050926
  5. VIRAMUNE [Concomitant]
     Dosage: TAKEN FOR SEVERAL YEARS
  6. TRUVADA [Concomitant]
     Dosage: TAKEN FOR 14 DAYS

REACTIONS (1)
  - CEREBROVASCULAR ACCIDENT [None]
